FAERS Safety Report 13511174 (Version 1)
Quarter: 2017Q2

REPORT INFORMATION
  Report Type: Spontaneous
  Country: FR (occurrence: FR)
  Receive Date: 20170503
  Receipt Date: 20170503
  Transmission Date: 20170830
  Serious: Yes (Other)
  Sender: FDA-Public Use
  Company Number: FR-009507513-1705FRA001620

PATIENT
  Sex: Male

DRUGS (2)
  1. FIDAXOMICIN [Suspect]
     Active Substance: FIDAXOMICIN
     Indication: CLOSTRIDIUM DIFFICILE INFECTION
     Dosage: 2 (TABLETS) DF, ONCE DAILY
     Route: 048
     Dates: start: 20170416, end: 20170425
  2. AUGMENTIN [Concomitant]
     Active Substance: AMOXICILLIN\CLAVULANATE POTASSIUM
     Indication: CARDIOVASCULAR DISORDER
     Dosage: UNK UNK, UNKNOWN FREQ.
     Route: 065

REACTIONS (2)
  - Clostridium difficile infection [Not Recovered/Not Resolved]
  - Diarrhoea [Not Recovered/Not Resolved]

NARRATIVE: CASE EVENT DATE: 20170425
